APPROVED DRUG PRODUCT: PRUCALOPRIDE SUCCINATE
Active Ingredient: PRUCALOPRIDE SUCCINATE
Strength: EQ 2MG BASE
Dosage Form/Route: TABLET;ORAL
Application: A218812 | Product #002 | TE Code: AB
Applicant: AMNEAL PHARMACEUTICALS LLC
Approved: Jun 24, 2025 | RLD: No | RS: No | Type: RX